FAERS Safety Report 26137196 (Version 1)
Quarter: 2025Q4

REPORT INFORMATION
  Report Type: Spontaneous
  Country: EG (occurrence: EG)
  Receive Date: 20251209
  Receipt Date: 20251209
  Transmission Date: 20260118
  Serious: Yes (Hospitalization, Other)
  Sender: NOVO NORDISK
  Company Number: EG-NOVOPROD-1577734

PATIENT
  Sex: Male
  Weight: 55 kg

DRUGS (6)
  1. NOVORAPID [Suspect]
     Active Substance: INSULIN ASPART
     Indication: Type 1 diabetes mellitus
     Dosage: 23 IU, QD (WITH MEALS)
     Route: 058
  2. TRESIBA [Suspect]
     Active Substance: INSULIN DEGLUDEC
     Indication: Type 1 diabetes mellitus
     Dosage: 18 IU, QD (AT NIGHT)
     Route: 058
  3. TRESIBA [Suspect]
     Active Substance: INSULIN DEGLUDEC
     Dosage: 43 IU, QD (10U, 15 U , 18U THROUGH THE DAY)
     Route: 058
  4. THYROXINE [Concomitant]
     Active Substance: LEVOTHYROXINE
     Indication: Hypothyroidism
     Dosage: UNK ONCE DAILY
     Route: 048
  5. OMEGA [CONVALLARIA MAJALIS;CRATAEGUS LAEVIGATA;PROXYPHYLLINE] [Concomitant]
     Indication: Body fat disorder
     Dosage: UNK ONCE DAILY
     Route: 048
     Dates: start: 202501
  6. BONE CARE [ALFACALCIDOL] [Concomitant]
     Indication: Vitamin supplementation
     Dosage: UNK ONCE DAILY
     Route: 048
     Dates: start: 202501

REACTIONS (4)
  - Diabetic coma [Unknown]
  - Diabetic ketoacidosis [Recovered/Resolved with Sequelae]
  - Hyperglycaemia [Recovered/Resolved with Sequelae]
  - Hypoglycaemia [Unknown]

NARRATIVE: CASE EVENT DATE: 20250901
